FAERS Safety Report 7029148-2 (Version None)
Quarter: 2010Q4

REPORT INFORMATION
  Report Type: 
  Country: None (occurrence: None)
  Receive Date: 20101005
  Receipt Date: 20100928
  Transmission Date: 20110411
  Serious: No
  Sender: FDA-Public Use
  Company Number: US-PFIZER INC-2010123661

PATIENT

DRUGS (1)
  1. BEXTRA [Suspect]
     Dosage: UNK

REACTIONS (1)
  - DERMATITIS ALLERGIC [None]
